FAERS Safety Report 7859913-0 (Version None)
Quarter: 2011Q4

REPORT INFORMATION
  Report Type: 
  Country: None (occurrence: None)
  Receive Date: 20111027
  Receipt Date: 20111026
  Transmission Date: 20120403
  Serious: Yes (Other)
  Sender: FDA-Public Use
  Company Number: US-PFIZER INC-2011252020

PATIENT
  Sex: Female
  Weight: 97.5 kg

DRUGS (16)
  1. LYRICA [Suspect]
     Indication: NEUROPATHY PERIPHERAL
     Dosage: 200 MG, 3X/DAY
     Route: 048
  2. MONOPRIL [Suspect]
  3. LISINOPRIL [Suspect]
     Route: 048
  4. ATACAND [Suspect]
     Route: 048
  5. CYMBALTA [Concomitant]
  6. LYRICA [Suspect]
     Dosage: 100 MG, 2X/DAY
     Dates: start: 20100801, end: 20100829
  7. ATENOLOL [Suspect]
  8. LYRICA [Suspect]
     Dosage: 175 MG, 3X/DAY
     Route: 048
     Dates: start: 20100101
  9. PERCOCET [Concomitant]
  10. VALIUM [Concomitant]
  11. SOMA [Concomitant]
  12. POTASSIUM [Concomitant]
  13. LYRICA [Suspect]
     Indication: BACK PAIN
     Dosage: 150 MG, 2X/DAY
     Route: 048
     Dates: start: 20100101, end: 20100101
  14. LYRICA [Suspect]
     Indication: FIBROMYALGIA
     Dosage: 150 MG, 3X/DAY
     Route: 048
     Dates: start: 20100101, end: 20100101
  15. METFORMIN [Concomitant]
  16. HYDROCHLOROTHIAZIDE [Concomitant]

REACTIONS (8)
  - BLOOD CHOLESTEROL INCREASED [None]
  - RENAL IMPAIRMENT [None]
  - BACK DISORDER [None]
  - NEURALGIA [None]
  - MENTAL IMPAIRMENT [None]
  - ROAD TRAFFIC ACCIDENT [None]
  - FIBROMYALGIA [None]
  - NEUROPATHY PERIPHERAL [None]
